FAERS Safety Report 24148834 (Version 2)
Quarter: 2024Q4

REPORT INFORMATION
  Report Type: Spontaneous
  Country: US (occurrence: US)
  Receive Date: 20240729
  Receipt Date: 20241125
  Transmission Date: 20250115
  Serious: No
  Sender: PFIZER
  Company Number: US-PFIZER INC-202400222414

PATIENT
  Age: 13 Year
  Sex: Male

DRUGS (1)
  1. GENOTROPIN [Suspect]
     Active Substance: SOMATROPIN
     Dosage: UNK

REACTIONS (5)
  - Drug dose omission by device [Unknown]
  - Wrong technique in product usage process [Unknown]
  - Device breakage [Unknown]
  - Device use error [Unknown]
  - Device defective [Unknown]

NARRATIVE: CASE EVENT DATE: 20240723
